FAERS Safety Report 7734607-0 (Version None)
Quarter: 2011Q3

REPORT INFORMATION
  Report Type: 
  Country: None (occurrence: None)
  Receive Date: 20110907
  Receipt Date: 20110901
  Transmission Date: 20111222
  Serious: No
  Sender: FDA-Public Use
  Company Number: US-TEVA-299014USA

PATIENT
  Sex: Female
  Weight: 83.99 kg

DRUGS (2)
  1. PROAIR HFA [Suspect]
     Indication: ASTHMA
     Route: 055
  2. DIPHENHYDRAMINE HCL [Concomitant]

REACTIONS (1)
  - WHEEZING [None]
